FAERS Safety Report 12604367 (Version 13)
Quarter: 2018Q1

REPORT INFORMATION
  Report Type: Spontaneous
  Country: JP (occurrence: JP)
  Receive Date: 20160728
  Receipt Date: 20180117
  Transmission Date: 20180508
  Serious: Yes (Hospitalization)
  Sender: FDA-Public Use
  Company Number: PHJP2016JP021569

PATIENT
  Age: 91 Year
  Sex: Female

DRUGS (9)
  1. ASPIRIN                            /00346701/ [Concomitant]
     Active Substance: ASCORBIC ACID\ASPIRIN
     Indication: PRODUCT USED FOR UNKNOWN INDICATION
     Dosage: UNK
     Route: 048
     Dates: start: 201403
  2. RIVASTACH [Suspect]
     Active Substance: RIVASTIGMINE
     Indication: DEMENTIA ALZHEIMER^S TYPE
     Dosage: 9.5 MG, QD, PATCH 10 (CM^2)
     Route: 062
     Dates: start: 201403
  3. RIVASTACH [Suspect]
     Active Substance: RIVASTIGMINE
     Dosage: 13.5 MG, QD, PATCH 7.5 (CM^2)
     Route: 062
  4. RIVASTACH [Suspect]
     Active Substance: RIVASTIGMINE
     Dosage: 4.5 MG, QD, PATCH 2.5 (CM^2)
     Route: 062
  5. AMLODIPINE [Concomitant]
     Active Substance: AMLODIPINE BESYLATE
     Indication: HYPERTENSION
     Dosage: UNK
     Route: 048
     Dates: start: 201403
  6. RIVASTACH [Suspect]
     Active Substance: RIVASTIGMINE
     Dosage: 9 MG, QD, PATCH 5 (CM^2)
     Route: 062
  7. RIVASTACH [Suspect]
     Active Substance: RIVASTIGMINE
     Dosage: 18 MG, QD, PATCH 10 (CM^2), 10 PATCHES
     Route: 062
  8. RIVASTACH [Suspect]
     Active Substance: RIVASTIGMINE
     Dosage: 9.5 MG, QD, PATCH 10 (CM^2); 10 PATCHES
     Route: 062
  9. MOHRUS [Concomitant]
     Active Substance: KETOPROFEN
     Indication: BACK PAIN
     Dosage: UNK
     Route: 062

REACTIONS (14)
  - Vomiting [Recovered/Resolved]
  - Miosis [Recovered/Resolved]
  - Wrong technique in product usage process [Unknown]
  - Hyperhidrosis [Recovered/Resolved]
  - Overdose [Recovered/Resolved]
  - Drug administration error [Unknown]
  - Gastrointestinal sounds abnormal [Recovered/Resolved]
  - Somnolence [Recovered/Resolved]
  - Hypertension [Recovered/Resolved]
  - Toxicity to various agents [Recovering/Resolving]
  - Cholinergic syndrome [Recovered/Resolved]
  - Sinus tachycardia [Recovered/Resolved]
  - Altered state of consciousness [Recovering/Resolving]
  - Unresponsive to stimuli [Unknown]

NARRATIVE: CASE EVENT DATE: 20160131
